FAERS Safety Report 15561284 (Version 1)
Quarter: 2018Q4

REPORT INFORMATION
  Report Type: Spontaneous
  Country: US (occurrence: US)
  Receive Date: 20181029
  Receipt Date: 20181029
  Transmission Date: 20190205
  Serious: Yes (Life-Threatening, Hospitalization, Other)
  Sender: FDA-Public Use
  Company Number: US-ACELLA PHARMACEUTICALS, LLC-2058168

PATIENT
  Age: 33 Year
  Sex: Female

DRUGS (1)
  1. GABAPENTIN. [Suspect]
     Active Substance: GABAPENTIN
     Indication: OVERDOSE

REACTIONS (8)
  - Apnoea [Unknown]
  - Somnolence [Unknown]
  - Loss of consciousness [Recovered/Resolved]
  - Generalised tonic-clonic seizure [Unknown]
  - Metabolic acidosis [Unknown]
  - Cyanosis [Unknown]
  - Tachycardia [Unknown]
  - Hypoxia [Unknown]
